FAERS Safety Report 8781887 (Version 3)
Quarter: 2012Q4

REPORT INFORMATION
  Report Type: 
  Country: US (occurrence: US)
  Receive Date: 20120913
  Receipt Date: 20121217
  Transmission Date: 20130627
  Serious: Yes (Hospitalization)
  Sender: FDA-Public Use
  Company Number: US-BAYER-2012-094624

PATIENT
  Age: 18 Year
  Sex: Female
  Weight: 155 kg

DRUGS (5)
  1. YAZ [Suspect]
     Indication: ACNE
     Dosage: UNK
     Dates: start: 2004, end: 2006
  2. YAZ [Suspect]
     Indication: POLYCYSTIC OVARIAN SYNDROME
  3. YASMIN [Suspect]
     Indication: ACNE
     Dosage: UNK
     Dates: start: 2004, end: 2006
  4. YASMIN [Suspect]
     Indication: POLYCYSTIC OVARIAN SYNDROME
  5. NSAID^S [Concomitant]
     Dosage: UNK
     Dates: start: 2004

REACTIONS (8)
  - Cholelithiasis [None]
  - Pain [None]
  - Injury [None]
  - General physical health deterioration [None]
  - Emotional distress [None]
  - Anhedonia [None]
  - Pain [None]
  - Anxiety [None]
